FAERS Safety Report 9462788 (Version 3)
Quarter: 2013Q4

REPORT INFORMATION
  Report Type: Report from Study
  Country: US (occurrence: US)
  Receive Date: 20130816
  Receipt Date: 20131021
  Transmission Date: 20140711
  Serious: Yes (Hospitalization)
  Sender: FDA-Public Use
  Company Number: US-ACTELION-A-US2013-87020

PATIENT
  Age: 76 Year
  Sex: Female

DRUGS (13)
  1. TRACLEER [Suspect]
     Indication: PULMONARY ARTERIAL HYPERTENSION
     Dosage: 125 MG, BID
     Route: 048
     Dates: start: 2007
  2. FLOLAN [Concomitant]
     Dosage: UNK
     Dates: start: 20040319
  3. COUMADIN [Concomitant]
     Dosage: 2 MG, QD
     Dates: start: 1990
  4. FUROSEMIDE [Concomitant]
     Dosage: 80 MG, BID
     Dates: start: 2008
  5. POTASSIUM [Concomitant]
     Dosage: UNK UNK, QD
     Dates: start: 2008
  6. PREDNISONE [Concomitant]
     Dosage: 10 MG, QD
     Dates: start: 2013
  7. CELEBREX [Concomitant]
     Dosage: 200 MG, QD
     Dates: start: 2010
  8. PREMARIN [Concomitant]
     Dosage: 6.5 MG, QD
     Dates: start: 2010
  9. ALLOPURINOL [Concomitant]
     Dosage: 300 MG, QD
     Dates: start: 2010
  10. TRAMADOL [Concomitant]
     Dosage: UNK, PRN
     Dates: start: 2010
  11. XANAX [Concomitant]
     Dosage: 1 MG, QID
     Dates: start: 2010
  12. CALTRATE [Concomitant]
     Dosage: UNK, QD
     Dates: start: 2010
  13. VITAMIN E [Concomitant]

REACTIONS (8)
  - Fall [Recovered/Resolved]
  - Upper limb fracture [Recovering/Resolving]
  - Lower limb fracture [Unknown]
  - No therapeutic response [Unknown]
  - Dyspnoea exertional [Unknown]
  - Fatigue [Unknown]
  - Heart rate irregular [Not Recovered/Not Resolved]
  - Hypotension [Not Recovered/Not Resolved]
